FAERS Safety Report 7809119-6 (Version None)
Quarter: 2011Q4

REPORT INFORMATION
  Report Type: 
  Country: None (occurrence: None)
  Receive Date: 20111012
  Receipt Date: 20111004
  Transmission Date: 20120403
  Serious: Yes (Hospitalization)
  Sender: FDA-Public Use
  Company Number: NL-TEVA-304131ISR

PATIENT
  Sex: Female

DRUGS (19)
  1. AMOXICILLIN [Suspect]
     Indication: SINUSITIS
     Dates: start: 20101115, end: 20101122
  2. LIDOCAINE [Concomitant]
     Dosage: 60 MG/ML;
  3. LIDOCAINE VASELINE CREAM [Concomitant]
     Dosage: 3% FNA MR
  4. DENOREX RX SHAMPOO [Concomitant]
     Dosage: .4286 DOSAGE FORMS;
  5. LOCOID SCALP LOTION [Concomitant]
     Dosage: .5 MG/ML;
  6. DERMOVATE HYDROFOBE [Concomitant]
     Dosage: 2 DOSAGE FORMS;
  7. ALENDRONINEZUUR PCH [Concomitant]
     Dosage: 10 MILLIGRAM;
  8. CLOBETASOL PROPIONATE [Concomitant]
     Dosage: 1 DOSAGE FORMS; LOTION 0.05%
  9. CALCIUM CARBONATE [Concomitant]
     Dosage: KAUWTABLET 500MG/400LE
  10. ORGAMETRIL [Concomitant]
     Dosage: 5 MILLIGRAM;
  11. AMITRIPTYLINE HCL [Suspect]
     Indication: FIBROMYALGIA
     Dosage: 25 MILLIGRAM;
     Dates: start: 20101015, end: 20101203
  12. FLUCONAZOLE [Concomitant]
     Dosage: 5 MILLIGRAM;
  13. CLEMASTINE FUMARATE [Concomitant]
     Dosage: 3 MILLIGRAM;
  14. KOELZALF FNA [Concomitant]
     Dosage: 2 DOSAGE FORMS;
  15. LACTULOSE [Concomitant]
     Dosage: 500 ; MG/G  15ML
  16. OMEPRAZOL ACTAVIS [Concomitant]
     Dosage: 40 MILLIGRAM;
  17. CARBAMAZEPINE [Suspect]
     Indication: HEADACHE
     Dosage: 200 MILLIGRAM;
     Dates: start: 20101022, end: 20101206
  18. FLUCONAZOLE [Concomitant]
     Dosage: 10 MG/ML; 5ML
  19. PANADOL ARTROSE [Concomitant]
     Dosage: 1000 MILLIGRAM;

REACTIONS (1)
  - DRUG RASH WITH EOSINOPHILIA AND SYSTEMIC SYMPTOMS [None]
